FAERS Safety Report 8492150-8 (Version None)
Quarter: 2012Q3

REPORT INFORMATION
  Report Type: 
  Country: None (occurrence: None)
  Receive Date: 20120706
  Receipt Date: 20120704
  Transmission Date: 20120928
  Serious: Yes (Other)
  Sender: FDA-Public Use
  Company Number: PHFR2010GB05995

PATIENT
  Sex: Male

DRUGS (5)
  1. PROCYCLIDINE HYDROCHLORIDE 2MG TAB [Concomitant]
     Dosage: 5 MG, TID
     Route: 065
  2. CLOZARIL [Suspect]
     Route: 048
     Dates: start: 20070726
  3. DIAZEPAM [Concomitant]
     Dosage: 5 MG, PRN
     Route: 065
  4. CLOZARIL [Suspect]
     Dosage: 100 MG MANE 300 MG NOCTE
     Route: 048
  5. SULPIRIDE [Concomitant]
     Dosage: 300 MG MANE 400 MG NOCTE
     Route: 065

REACTIONS (1)
  - DIFFERENTIAL WHITE BLOOD CELL COUNT ABNORMAL [None]
